FAERS Safety Report 5447587-8 (Version None)
Quarter: 2007Q3

REPORT INFORMATION
  Report Type: 
  Country: None (occurrence: None)
  Receive Date: 20070905
  Receipt Date: 20070820
  Transmission Date: 20080115
  Serious: Yes (Hospitalization)
  Sender: FDA-Public Use
  Company Number: 2006P1000292

PATIENT
  Age: 42 Year
  Sex: Male
  Weight: 80 kg

DRUGS (10)
  1. RETEPLASE [Suspect]
     Indication: ACUTE MYOCARDIAL INFARCTION
     Dosage: 5 IU;BID;IV
     Route: 042
     Dates: start: 20050604, end: 20050604
  2. ABCIXIMAB          (ABCIXIMAB) [Suspect]
     Indication: ACUTE MYOCARDIAL INFARCTION
     Dosage: 10 MG;X1;IV; 39.6 MG;X1;IV
     Route: 042
     Dates: start: 20050604, end: 20050604
  3. ABCIXIMAB          (ABCIXIMAB) [Suspect]
     Indication: ACUTE MYOCARDIAL INFARCTION
     Dosage: 10 MG;X1;IV; 39.6 MG;X1;IV
     Route: 042
     Dates: start: 20050604, end: 20050604
  4. PLACEBO              (PLACEBO) [Suspect]
     Indication: ACUTE MYOCARDIAL INFARCTION
     Dosage: 0.25 MG/KG;X1;IV
     Route: 042
     Dates: start: 20050604, end: 20050604
  5. BISOPROLOL [Concomitant]
  6. CILAZAPRIL [Concomitant]
  7. TICLOPIDINE HCL [Concomitant]
  8. ACARD [Concomitant]
  9. SIMVASTATIN [Concomitant]
  10. TIANEPTINE [Concomitant]

REACTIONS (5)
  - ABDOMINAL PAIN [None]
  - CONDITION AGGRAVATED [None]
  - CORONARY ARTERY DISEASE [None]
  - EPIGASTRIC DISCOMFORT [None]
  - NAUSEA [None]
